FAERS Safety Report 11054893 (Version 2)
Quarter: 2015Q2

REPORT INFORMATION
  Report Type: Spontaneous
  Country: GB (occurrence: GB)
  Receive Date: 20150422
  Receipt Date: 20150512
  Transmission Date: 20150821
  Serious: Yes (Hospitalization, Disabling)
  Sender: FDA-Public Use
  Company Number: GB-BRISTOL-MYERS SQUIBB COMPANY-BMS-2015-023536

PATIENT
  Age: 48 Year
  Sex: Female
  Weight: 57 kg

DRUGS (1)
  1. KENALOG [Suspect]
     Active Substance: TRIAMCINOLONE ACETONIDE
     Indication: BACK DISORDER
     Dosage: 40 MG, QD
     Route: 008
     Dates: start: 20110127, end: 20110128

REACTIONS (18)
  - Fluid retention [Unknown]
  - Functional gastrointestinal disorder [Unknown]
  - Muscle spasms [Unknown]
  - Palpitations [Unknown]
  - Hypohidrosis [Unknown]
  - Hypervigilance [Unknown]
  - Syncope [Unknown]
  - Vomiting [Unknown]
  - Asthenia [Unknown]
  - Off label use [Unknown]
  - Toxicity to various agents [Not Recovered/Not Resolved]
  - Insomnia [Unknown]
  - Tendon disorder [Unknown]
  - Ear pain [Unknown]
  - Blood glucose abnormal [Unknown]
  - Myalgia [Unknown]
  - Dizziness [Unknown]
  - Musculoskeletal stiffness [Unknown]

NARRATIVE: CASE EVENT DATE: 20110127
